FAERS Safety Report 7484234-8 (Version None)
Quarter: 2011Q2

REPORT INFORMATION
  Report Type: 
  Country: None (occurrence: None)
  Receive Date: 20110517
  Receipt Date: 20110513
  Transmission Date: 20111010
  Serious: Yes (Death, Other)
  Sender: FDA-Public Use
  Company Number: PHHY2011US38382

PATIENT
  Sex: Male
  Weight: 86.621 kg

DRUGS (3)
  1. DIOVAN HCT [Suspect]
     Dosage: 160/12.5 MG, UNK
  2. ASPIRIN [Concomitant]
  3. LIPITOR [Concomitant]

REACTIONS (3)
  - CIRCULATORY COLLAPSE [None]
  - CARDIO-RESPIRATORY ARREST [None]
  - DEATH [None]
